FAERS Safety Report 8486268-3 (Version None)
Quarter: 2012Q3

REPORT INFORMATION
  Report Type: 
  Country: None (occurrence: None)
  Receive Date: 20120703
  Receipt Date: 20120629
  Transmission Date: 20120928
  Serious: Yes (Hospitalization, Other)
  Sender: FDA-Public Use
  Company Number: US-PFIZER INC-2011130223

PATIENT
  Sex: Female
  Weight: 52.154 kg

DRUGS (2)
  1. LIPITOR [Suspect]
     Indication: HYPERTENSION
     Dosage: 80 MG, DAILY
  2. NORVASC [Suspect]
     Indication: HYPERTENSION
     Dosage: 2.5 MG, DAILY

REACTIONS (3)
  - HYPOACUSIS [None]
  - MEMORY IMPAIRMENT [None]
  - HYPERTENSION [None]
